FAERS Safety Report 25118008 (Version 2)
Quarter: 2025Q2

REPORT INFORMATION
  Report Type: Spontaneous
  Country: FR (occurrence: FR)
  Receive Date: 20250325
  Receipt Date: 20250630
  Transmission Date: 20250716
  Serious: Yes (Other)
  Sender: PFIZER
  Company Number: FR-AFSSAPS-LL2024002190

PATIENT
  Age: 64 Year
  Sex: Male

DRUGS (23)
  1. CARBOPLATIN [Suspect]
     Active Substance: CARBOPLATIN
     Indication: Lung adenocarcinoma
     Route: 065
     Dates: start: 20240711
  2. CARBOPLATIN [Suspect]
     Active Substance: CARBOPLATIN
  3. PEMETREXED [Suspect]
     Active Substance: PEMETREXED
     Indication: Lung adenocarcinoma
     Route: 065
     Dates: start: 20240711
  4. PEMETREXED [Suspect]
     Active Substance: PEMETREXED
  5. AMIVANTAMAB [Suspect]
     Active Substance: AMIVANTAMAB
     Indication: Lung adenocarcinoma
     Route: 042
     Dates: start: 20240711
  6. AMIVANTAMAB [Suspect]
     Active Substance: AMIVANTAMAB
  7. ALFUZOSIN [Concomitant]
     Active Substance: ALFUZOSIN
     Dosage: 10 MG, 1X/DAY
  8. ATORVASTATIN [Concomitant]
     Active Substance: ATORVASTATIN
     Dosage: 10 MG, 1X/DAY
  9. ACETAMINOPHEN [Concomitant]
     Active Substance: ACETAMINOPHEN
     Dosage: FREQ:6 H
  10. MORPHINE SULFATE [Concomitant]
     Active Substance: MORPHINE SULFATE
     Dosage: FREQ:6 H
  11. BROMAZEPAM [Concomitant]
     Active Substance: BROMAZEPAM
     Dosage: 6 MG 1/4 TAB/DAY
  12. POLYETHYLENE GLYCOLS [Concomitant]
     Active Substance: POLYETHYLENE GLYCOLS
  13. CHOLECALCIFEROL [Concomitant]
     Active Substance: CHOLECALCIFEROL
  14. DENOSUMAB [Concomitant]
     Active Substance: DENOSUMAB
     Dosage: 120 MG, MONTHLY
  15. MIRTAZAPINE [Concomitant]
     Active Substance: MIRTAZAPINE
     Dosage: 15 MG, 1X/DAY
  16. APREPITANT [Concomitant]
     Active Substance: APREPITANT
  17. APREPITANT [Concomitant]
     Active Substance: APREPITANT
  18. METHYLPREDNISOLONE [Concomitant]
     Active Substance: METHYLPREDNISOLONE
  19. PRIMPERAN [Concomitant]
     Active Substance: METOCLOPRAMIDE HYDROCHLORIDE
     Dosage: 3/DAY
  20. DEXERYL [CHLORPHENAMINE MALEATE;DEXTROMETHORPHAN HYDROBROMIDE;GUAIFENE [Concomitant]
  21. SODIUM BICARBONATE [Concomitant]
     Active Substance: SODIUM BICARBONATE
  22. FOLIC ACID [Concomitant]
     Active Substance: FOLIC ACID
     Dosage: 0.4 MG, 1X/DAY
  23. VITAMIN B12 [Concomitant]
     Active Substance: CYANOCOBALAMIN

REACTIONS (4)
  - Folliculitis [Recovered/Resolved]
  - Impetigo [Recovered/Resolved]
  - Photosensitivity reaction [Recovered/Resolved]
  - Off label use [Unknown]

NARRATIVE: CASE EVENT DATE: 20240711
